FAERS Safety Report 7384990-3 (Version None)
Quarter: 2011Q1

REPORT INFORMATION
  Report Type: 
  Country: None (occurrence: None)
  Receive Date: 20110330
  Receipt Date: 20110315
  Transmission Date: 20110831
  Serious: No
  Sender: FDA-Public Use
  Company Number: US-ROXANE LABORATORIES, INC.-2011-RO-00415RO

PATIENT
  Sex: Male

DRUGS (1)
  1. PROPANTHELINE BROMIDE [Suspect]
     Indication: HYPERHIDROSIS

REACTIONS (1)
  - THERAPEUTIC RESPONSE UNEXPECTED [None]
